FAERS Safety Report 9126674 (Version 2)
Quarter: 2013Q3

REPORT INFORMATION
  Report Type: Spontaneous
  Country: GB (occurrence: GB)
  Receive Date: 20130121
  Receipt Date: 20130927
  Transmission Date: 20140515
  Serious: Yes (Other)
  Sender: FDA-Public Use
  Company Number: PHHY2013GB004117

PATIENT
  Age: 48 Year
  Sex: Female
  Weight: 57.6 kg

DRUGS (2)
  1. CITALOPRAM [Suspect]
     Indication: DEPRESSION
     Dosage: 40 MG, UNK
     Route: 048
     Dates: start: 20111110
  2. ZOPICLONE [Concomitant]
     Dosage: 3.75 MG, UNK

REACTIONS (4)
  - Head discomfort [Not Recovered/Not Resolved]
  - Nausea [Not Recovered/Not Resolved]
  - Vertigo [Not Recovered/Not Resolved]
  - Paraesthesia [Not Recovered/Not Resolved]
